FAERS Safety Report 8454176-X (Version None)
Quarter: 2012Q2

REPORT INFORMATION
  Report Type: 
  Country: None (occurrence: None)
  Receive Date: 20120620
  Receipt Date: 20120613
  Transmission Date: 20120825
  Serious: Yes (Other)
  Sender: FDA-Public Use
  Company Number: AU-B.I. PHARMACEUTICALS,INC./RIDGEFIELD-2012-AU-01035AU

PATIENT
  Age: 90 Year
  Sex: Female

DRUGS (2)
  1. EFFEXOR XR [Concomitant]
     Dosage: 225 MG
  2. PRADAXA [Suspect]
     Dosage: 220 MG

REACTIONS (2)
  - CEREBROVASCULAR ACCIDENT [None]
  - ANXIETY [None]
